FAERS Safety Report 7807432-X (Version None)
Quarter: 2011Q4

REPORT INFORMATION
  Report Type: 
  Country: None (occurrence: None)
  Receive Date: 20111011
  Receipt Date: 20110928
  Transmission Date: 20120403
  Serious: Yes (Other)
  Sender: FDA-Public Use
  Company Number: PHHY2011ZA86655

PATIENT
  Sex: Male

DRUGS (4)
  1. PHENYTOIN SODIUM [Concomitant]
     Dosage: UNK UKN, UNK
  2. TEGRETOL-XR [Suspect]
     Dosage: 600 MG, MANE 400 MG NOCTE
  3. TEGRETOL-XR [Suspect]
     Dosage: 600 MG, BID
  4. TEGRETOL-XR [Suspect]
     Dosage: 400 MG, BID

REACTIONS (1)
  - CONVULSION [None]
